FAERS Safety Report 5584480-4 (Version None)
Quarter: 2008Q1

REPORT INFORMATION
  Report Type: 
  Country: None (occurrence: None)
  Receive Date: 20080108
  Receipt Date: 20071227
  Transmission Date: 20080703
  Serious: Yes (Death)
  Sender: FDA-Public Use
  Company Number: US-ELI_LILLY_AND_COMPANY-US200710002297

PATIENT
  Age: 86 Year
  Sex: Female

DRUGS (9)
  1. FORTEO [Suspect]
     Dosage: 20 UG, DAILY (1/D)
     Dates: start: 20070113, end: 20070510
  2. PRAVACHOL [Concomitant]
     Dosage: 40 MG, UNK
  3. DETROL /01350201/ [Concomitant]
  4. CENTRUM SILVER [Concomitant]
  5. IRON [Concomitant]
  6. FOLIC ACID [Concomitant]
  7. OSCAL [Concomitant]
  8. VITAMIN D [Concomitant]
  9. ASPIRIN [Concomitant]

REACTIONS (2)
  - APPENDICITIS PERFORATED [None]
  - INTERSTITIAL LUNG DISEASE [None]
